FAERS Safety Report 5614829-5 (Version None)
Quarter: 2008Q1

REPORT INFORMATION
  Report Type: 
  Country: None (occurrence: None)
  Receive Date: 20080111
  Receipt Date: 20070326
  Transmission Date: 20080703
  Serious: Yes (Other)
  Sender: FDA-Public Use
  Company Number: HQWYE938127MAR07

PATIENT
  Age: 60 Year
  Sex: Female
  Weight: 77.18 kg

DRUGS (7)
  1. PREMPRO [Suspect]
     Indication: HOT FLUSH
     Dosage: 0.625MG/2.5MG DAILY INTERMITTENTLY, ORAL
     Route: 048
     Dates: start: 19960201, end: 20070227
  2. PREMPRO [Suspect]
     Indication: TENSION
     Dosage: 0.625MG/2.5MG DAILY INTERMITTENTLY, ORAL
     Route: 048
     Dates: start: 19960201, end: 20070227
  3. ZOCOR [Concomitant]
  4. FOSAMAX [Concomitant]
  5. VITAMIN D [Concomitant]
  6. VITAMIN E [Concomitant]
  7. CALCIUM (CALCIUM) [Concomitant]

REACTIONS (1)
  - BREAST CANCER [None]
